FAERS Safety Report 11912669 (Version 3)
Quarter: 2016Q2

REPORT INFORMATION
  Report Type: Spontaneous
  Country: US (occurrence: US)
  Receive Date: 20160113
  Receipt Date: 20160620
  Transmission Date: 20160815
  Serious: No
  Sender: FDA-Public Use
  Company Number: PHEH2016US000981

PATIENT
  Age: 53 Year
  Sex: Male
  Weight: 87.9 kg

DRUGS (4)
  1. IMODIUM [Concomitant]
     Active Substance: LOPERAMIDE HYDROCHLORIDE
     Indication: DIARRHOEA
     Dosage: 10 OT, QD (ALTERNATING WITH DIPHENOXYLATE)
     Route: 065
  2. PAREGORIC                          /00099501/ [Concomitant]
     Indication: RENAL CANCER
     Dosage: 0.6 ML, QID
     Route: 048
     Dates: start: 20160422
  3. VOTRIENT [Suspect]
     Active Substance: PAZOPANIB HYDROCHLORIDE
     Indication: RENAL CANCER
     Dosage: 800 MG, QD
     Route: 048
     Dates: start: 20151204
  4. DIPHENOXYLATE HYDROCHLORIDE AND ATROPINE SULFATE [Concomitant]
     Active Substance: ATROPINE SULFATE\DIPHENOXYLATE HYDROCHLORIDE
     Indication: DIARRHOEA
     Dosage: 2 DF, QID (SCHEDULED IN ALTERNATING WITH IMODIUM)
     Route: 065
     Dates: start: 20160422

REACTIONS (3)
  - Visual impairment [Unknown]
  - Vision blurred [Unknown]
  - Cyst [Recovered/Resolved]

NARRATIVE: CASE EVENT DATE: 20151221
